FAERS Safety Report 26133489 (Version 1)
Quarter: 2025Q4

REPORT INFORMATION
  Report Type: Report from Study
  Country: US (occurrence: US)
  Receive Date: 20251209
  Receipt Date: 20251209
  Transmission Date: 20260118
  Serious: No
  Sender: CELLTRION
  Company Number: US-CELLTRION INC.-2025US032252

PATIENT

DRUGS (1)
  1. INFLIXIMAB-DYYB [Suspect]
     Active Substance: INFLIXIMAB-DYYB
     Indication: Product used for unknown indication
     Dosage: 120 MG/ML - INJECT THE CONTENTS OF ONE DEVICE  UNDER THE SKIN EVERY TWO WEEKS
     Route: 065

REACTIONS (2)
  - Malaise [Unknown]
  - Injection site pain [Unknown]
